FAERS Safety Report 5962464-1 (Version None)
Quarter: 2008Q4

REPORT INFORMATION
  Report Type: 
  Country: None (occurrence: None)
  Receive Date: 20081121
  Receipt Date: 20081111
  Transmission Date: 20090506
  Serious: Yes (Other)
  Sender: FDA-Public Use
  Company Number: IT-PFIZER INC-2008095660

PATIENT
  Age: 59 Year
  Sex: Male

DRUGS (8)
  1. PREGABALIN [Suspect]
  2. BUMETANIDE [Concomitant]
  3. PERINDOPRIL ERBUMINE [Concomitant]
  4. METOPROLOL [Concomitant]
  5. WARFARIN SODIUM [Concomitant]
  6. PRAVASTATIN [Concomitant]
  7. INSULIN [Concomitant]
  8. METFORMIN HCL [Concomitant]

REACTIONS (1)
  - CARDIAC FAILURE [None]
